FAERS Safety Report 17792031 (Version 1)
Quarter: 2020Q2

REPORT INFORMATION
  Report Type: Spontaneous
  Country: US (occurrence: US)
  Receive Date: 20200515
  Receipt Date: 20200515
  Transmission Date: 20200714
  Serious: Yes (Hospitalization)
  Sender: FDA-Public Use
  Company Number: US-MYLANLABS-2020M1047455

PATIENT
  Age: 41 Year
  Sex: Female

DRUGS (12)
  1. BUSPIRONE [Concomitant]
     Active Substance: BUSPIRONE HYDROCHLORIDE
     Indication: DEPRESSION
     Dosage: 10 MILLIGRAM TID, THREE TIMES A DAY
     Route: 065
  2. HYDROCODONE/ACETAMINOPHEN [Concomitant]
     Active Substance: ACETAMINOPHEN\HYDROCODONE
     Indication: FIBROMYALGIA
     Dosage: DOSE: 10-325 MG, PRN
     Route: 065
  3. TIZANIDINE. [Suspect]
     Active Substance: TIZANIDINE
     Indication: FIBROMYALGIA
     Dosage: 6 MILLIGRAM  TID,THREE TIMES A DAY
     Route: 065
  4. URSODIOL. [Concomitant]
     Active Substance: URSODIOL
     Indication: HEPATIC CIRRHOSIS
     Dosage: 300 MILLIGRAM, BID
     Route: 065
  5. DENOSUMAB [Concomitant]
     Active Substance: DENOSUMAB
     Indication: FIBROMYALGIA
     Dosage: 6 MONTH
     Route: 065
  6. GABAPENTIN. [Concomitant]
     Active Substance: GABAPENTIN
     Indication: DEPRESSION
     Dosage: 600 MILLIGRAM, BID
     Route: 065
  7. METOPROLOL SUCCINATE. [Concomitant]
     Active Substance: METOPROLOL SUCCINATE
     Indication: CORONARY ARTERY DISEASE
     Dosage: 75 MILLIGRAM, PRN
     Route: 065
  8. RIFAXIMIN. [Concomitant]
     Active Substance: RIFAXIMIN
     Indication: HEPATIC CIRRHOSIS
     Dosage: 550 MILLIGRAM, BID
     Route: 065
  9. AMITRIPTYLINE [Concomitant]
     Active Substance: AMITRIPTYLINE
     Indication: DEPRESSION
     Dosage: 25 MILLIGRAM, AT BEDTIME
     Route: 065
  10. CYANOCOBALAMIN. [Concomitant]
     Active Substance: CYANOCOBALAMIN
     Indication: IRON DEFICIENCY ANAEMIA
     Route: 045
  11. LACTULOSE. [Concomitant]
     Active Substance: LACTULOSE
     Indication: HEPATIC CIRRHOSIS
     Dosage: DOSE: 20G/30 ML, BID
     Route: 065
  12. NITROGLYCERIN. [Concomitant]
     Active Substance: NITROGLYCERIN
     Indication: CORONARY ARTERY DISEASE
     Dosage: 0.4 MILLIGRAM, PRN
     Route: 065

REACTIONS (11)
  - Neurological symptom [Recovered/Resolved]
  - Mental status changes [Recovered/Resolved]
  - Hallucination, visual [Unknown]
  - Toxicity to various agents [Recovering/Resolving]
  - Orthostatic hypotension [Recovered/Resolved]
  - Presyncope [Recovered/Resolved]
  - Cognitive disorder [Unknown]
  - Rebound effect [Unknown]
  - Norepinephrine increased [Unknown]
  - Orthostatic heart rate response increased [Unknown]
  - Product prescribing error [Recovering/Resolving]
